FAERS Safety Report 11397127 (Version 1)
Quarter: 2015Q3

REPORT INFORMATION
  Report Type: Spontaneous
  Country: MX (occurrence: MX)
  Receive Date: 20150819
  Receipt Date: 20150819
  Transmission Date: 20151125
  Serious: Yes (Other)
  Sender: FDA-Public Use
  Company Number: MX-PFIZER INC-2015270557

PATIENT
  Age: 50 Year
  Sex: Female
  Weight: 48 kg

DRUGS (2)
  1. ZYVOXAM [Suspect]
     Active Substance: LINEZOLID
     Dosage: UNK
     Route: 048
  2. ZYVOXAM [Suspect]
     Active Substance: LINEZOLID
     Indication: LYMPH NODE TUBERCULOSIS
     Dosage: 600 MG, 1X/DAY
     Route: 048

REACTIONS (8)
  - Loss of consciousness [Recovered/Resolved]
  - Vomiting [Recovered/Resolved]
  - Weight decreased [Recovered/Resolved]
  - Hypotension [Recovered/Resolved]
  - Paraesthesia [Recovered/Resolved]
  - Tachycardia [Recovered/Resolved]
  - Mydriasis [Recovered/Resolved]
  - Nausea [Recovered/Resolved]
